FAERS Safety Report 6249221-6 (Version None)
Quarter: 2009Q2

REPORT INFORMATION
  Report Type: 
  Country: None (occurrence: None)
  Receive Date: 20090629
  Receipt Date: 20090617
  Transmission Date: 20091009
  Serious: Yes (Other)
  Sender: FDA-Public Use
  Company Number: PHHY2009JP07050

PATIENT
  Sex: Female
  Weight: 21 kg

DRUGS (6)
  1. GLEEVEC [Suspect]
     Indication: CHRONIC MYELOID LEUKAEMIA
     Dosage: 250 MG DAILY
     Route: 048
     Dates: start: 20060725, end: 20060820
  2. GLEEVEC [Suspect]
     Dosage: 200 MG DAILY
     Route: 048
     Dates: start: 20060821, end: 20070121
  3. GLEEVEC [Suspect]
     Dosage: 150 MG DAILY
     Route: 048
     Dates: start: 20070213, end: 20071205
  4. GLEEVEC [Suspect]
     Dosage: 200 MG DAILY
     Route: 048
     Dates: start: 20071206, end: 20080227
  5. GLEEVEC [Suspect]
     Dosage: 300 MG DAILY
     Route: 048
     Dates: start: 20080228
  6. GLEEVEC [Suspect]
     Dosage: 150 MG DAILY
     Route: 048
     Dates: start: 20090302

REACTIONS (3)
  - BLOOD CREATINE PHOSPHOKINASE INCREASED [None]
  - NEUTROPENIA [None]
  - THROMBOCYTOPENIA [None]
